FAERS Safety Report 19661131 (Version 1)
Quarter: 2021Q3

REPORT INFORMATION
  Report Type: Spontaneous
  Country: JP (occurrence: JP)
  Receive Date: 20210805
  Receipt Date: 20210805
  Transmission Date: 20211014
  Serious: Yes (Other)
  Sender: FDA-Public Use
  Company Number: JP-ASTRAZENECA-2021A271275

PATIENT
  Age: 72 Year
  Sex: Male

DRUGS (1)
  1. IMFINZI [Suspect]
     Active Substance: DURVALUMAB
     Indication: NON-SMALL CELL LUNG CANCER
     Dosage: 10 MG/KG 1 TIME 2/WEEK
     Route: 042
     Dates: start: 20190604

REACTIONS (2)
  - Hypothyroidism [Unknown]
  - Radiation pneumonitis [Unknown]

NARRATIVE: CASE EVENT DATE: 20190813
